FAERS Safety Report 13336399 (Version 1)
Quarter: 2017Q1

REPORT INFORMATION
  Report Type: Spontaneous
  Country: US (occurrence: US)
  Receive Date: 20170314
  Receipt Date: 20170314
  Transmission Date: 20170428
  Serious: No
  Sender: FDA-Public Use
  Company Number: US-JAZZ-2016-US-022766

PATIENT
  Age: 30 Year
  Sex: Male

DRUGS (27)
  1. FISH OIL [Concomitant]
     Active Substance: FISH OIL
  2. VALIUM [Concomitant]
     Active Substance: DIAZEPAM
  3. PRILOSEC [Concomitant]
     Active Substance: OMEPRAZOLE MAGNESIUM
  4. CONCERTA LP [Concomitant]
     Active Substance: METHYLPHENIDATE HYDROCHLORIDE
  5. SUDAFED [Concomitant]
     Active Substance: PSEUDOEPHEDRINE HYDROCHLORIDE
  6. XYREM [Suspect]
     Active Substance: SODIUM OXYBATE
     Indication: NARCOLEPSY
     Dosage: 2.25 G, BID
     Route: 048
     Dates: start: 201607, end: 2016
  7. CYCLOBENZAPRINE                    /00428402/ [Concomitant]
     Active Substance: CYCLOBENZAPRINE
  8. SINGULAIR [Concomitant]
     Active Substance: MONTELUKAST SODIUM
  9. HYOSCYAMINE SULFATE. [Concomitant]
     Active Substance: HYOSCYAMINE SULFATE
  10. NASACORT ALLERGY 24HR [Concomitant]
     Active Substance: TRIAMCINOLONE ACETONIDE
  11. XYLITOL [Concomitant]
     Active Substance: XYLITOL
  12. XYREM [Suspect]
     Active Substance: SODIUM OXYBATE
     Indication: CATAPLEXY
     Dosage: DOSE ADJUSTMENT
     Route: 048
     Dates: start: 201608, end: 2016
  13. DULERA [Concomitant]
     Active Substance: FORMOTEROL FUMARATE DIHYDRATE\MOMETASONE FUROATE
  14. KELNOR 1/35 [Concomitant]
     Active Substance: ETHINYL ESTRADIOL\ETHYNODIOL DIACETATE
  15. XYZAL [Concomitant]
     Active Substance: LEVOCETIRIZINE DIHYDROCHLORIDE
  16. XYREM [Suspect]
     Active Substance: SODIUM OXYBATE
     Dosage: 4.5 G, BID
     Route: 048
     Dates: start: 201610
  17. RESTASIS [Concomitant]
     Active Substance: CYCLOSPORINE
  18. AFRIN [Concomitant]
     Active Substance: OXYMETAZOLINE
  19. ATROVENT [Concomitant]
     Active Substance: IPRATROPIUM BROMIDE
  20. CHOLESTYRAMINE COX [Concomitant]
  21. CLARITIN [Concomitant]
     Active Substance: LORATADINE
  22. ERYTHROMYCIN                       /00020902/ [Concomitant]
     Active Substance: ERYTHROMYCIN
  23. TYLENOL EXTRA STRENGTH [Concomitant]
     Active Substance: ACETAMINOPHEN
  24. ZANTAC 75 [Concomitant]
     Active Substance: RANITIDINE HYDROCHLORIDE
  25. ALBUTEROL SULFATE. [Concomitant]
     Active Substance: ALBUTEROL SULFATE
  26. CHLORPHENIRAMINE                   /00072501/ [Concomitant]
     Active Substance: CHLORPHENIRAMINE
  27. ADVIL (MEFENAMIC ACID) [Concomitant]
     Active Substance: MEFENAMIC ACID

REACTIONS (2)
  - Feeling abnormal [Not Recovered/Not Resolved]
  - Accidental overdose [Unknown]

NARRATIVE: CASE EVENT DATE: 20161114
